FAERS Safety Report 12804895 (Version 2)
Quarter: 2016Q4

REPORT INFORMATION
  Report Type: Spontaneous
  Country: FR (occurrence: FR)
  Receive Date: 20161003
  Receipt Date: 20161013
  Transmission Date: 20170207
  Serious: Yes (Other)
  Sender: FDA-Public Use
  Company Number: FR-BRISTOL-MYERS SQUIBB COMPANY-BMS-2016-078892

PATIENT
  Age: 48 Year
  Sex: Female

DRUGS (2)
  1. NIVOLUMAB BMS [Suspect]
     Active Substance: NIVOLUMAB
     Indication: BRONCHIAL CARCINOMA
     Dosage: SIX INFUSIONS
     Route: 065
  2. NIVOLUMAB BMS [Suspect]
     Active Substance: NIVOLUMAB
     Indication: LUNG NEOPLASM MALIGNANT

REACTIONS (3)
  - Hypothyroidism [Unknown]
  - Myalgia [Unknown]
  - Myositis [Recovering/Resolving]
